FAERS Safety Report 20831379 (Version 2)
Quarter: 2022Q3

REPORT INFORMATION
  Report Type: Report from Study
  Country: CA (occurrence: CA)
  Receive Date: 20220516
  Receipt Date: 20220713
  Transmission Date: 20221027
  Serious: Yes (Hospitalization, Other)
  Sender: FDA-Public Use
  Company Number: CA-ABBVIE-22K-028-4274020-00

PATIENT
  Sex: Male
  Weight: 136.20 kg

DRUGS (6)
  1. HUMIRA [Suspect]
     Active Substance: ADALIMUMAB
     Indication: Hidradenitis
     Route: 058
     Dates: start: 202103
  2. HUMIRA [Suspect]
     Active Substance: ADALIMUMAB
     Indication: Hidradenitis
     Route: 058
     Dates: start: 20210205, end: 20220428
  3. HUMIRA [Suspect]
     Active Substance: ADALIMUMAB
     Route: 058
  4. HUMIRA [Suspect]
     Active Substance: ADALIMUMAB
     Route: 058
     Dates: start: 20220520
  5. MODERNA COVID-19 VACCINE [Concomitant]
     Active Substance: ELASOMERAN
     Indication: COVID-19 prophylaxis
     Dosage: FIRST DOSE
     Route: 030
     Dates: start: 20210411, end: 20210411
  6. MODERNA COVID-19 VACCINE [Concomitant]
     Active Substance: ELASOMERAN
     Dosage: SECOND DOSE
     Route: 030
     Dates: start: 20210520, end: 20210520

REACTIONS (14)
  - Nodule [Recovered/Resolved]
  - Hidradenitis [Recovered/Resolved]
  - Abscess limb [Recovered/Resolved]
  - Malaise [Recovering/Resolving]
  - Tobacco user [Recovered/Resolved]
  - Tobacco user [Unknown]
  - Asthenia [Unknown]
  - Wound complication [Unknown]
  - Soft tissue infection [Unknown]
  - Pain [Unknown]
  - Bronchitis [Unknown]
  - Arthralgia [Unknown]
  - Therapeutic response shortened [Unknown]
  - Nodule [Unknown]

NARRATIVE: CASE EVENT DATE: 20210101
